FAERS Safety Report 5318835-X (Version None)
Quarter: 2007Q2

REPORT INFORMATION
  Report Type: 
  Country: None (occurrence: None)
  Receive Date: 20070508
  Receipt Date: 20070502
  Transmission Date: 20071010
  Serious: Yes (Other)
  Sender: FDA-Public Use
  Company Number: IT-AVENTIS-200711807GDDC

PATIENT
  Age: 53 Year
  Sex: Male

DRUGS (4)
  1. LANTUS [Suspect]
     Route: 058
     Dates: start: 20060901, end: 20061201
  2. IRBESARTAN AND HCTZ [Concomitant]
  3. INSULIN LISPRO [Concomitant]
     Route: 058
  4. AMLODIPINE [Concomitant]

REACTIONS (3)
  - DIABETIC KETOACIDOSIS [None]
  - KETOSIS [None]
  - PHARMACEUTICAL PRODUCT COMPLAINT [None]
